FAERS Safety Report 7230703-5 (Version None)
Quarter: 2011Q1

REPORT INFORMATION
  Report Type: 
  Country: None (occurrence: None)
  Receive Date: 20110105
  Receipt Date: 20101223
  Transmission Date: 20110831
  Serious: Yes (Death)
  Sender: FDA-Public Use
  Company Number: GER/GER/11/0017043

PATIENT
  Age: 78 Year
  Sex: Male

DRUGS (12)
  1. SERTRALINE HYDROCHLORIDE [Suspect]
     Indication: PRODUCT USED FOR UNKNOWN INDICATION
     Dosage: 50 MG, 1 D, ORAL; 75 MG, 1 D, ORAL; 100 MG, 1 D, ORAL
     Route: 048
     Dates: start: 20100527, end: 20100530
  2. SERTRALINE HYDROCHLORIDE [Suspect]
     Indication: PRODUCT USED FOR UNKNOWN INDICATION
     Dosage: 50 MG, 1 D, ORAL; 75 MG, 1 D, ORAL; 100 MG, 1 D, ORAL
     Route: 048
     Dates: end: 20100518
  3. SERTRALINE HYDROCHLORIDE [Suspect]
     Indication: PRODUCT USED FOR UNKNOWN INDICATION
     Dosage: 50 MG, 1 D, ORAL; 75 MG, 1 D, ORAL; 100 MG, 1 D, ORAL
     Route: 048
     Dates: start: 20100519, end: 20100526
  4. RISPERDAL [Suspect]
     Indication: PRODUCT USED FOR UNKNOWN INDICATION
     Dosage: 0.5 MG, 1 IN 1 D,ORAL; 1MG, 1 IN 1 D, ORAL; 2 MG, 1 IN 1 D, ORAL
     Route: 048
     Dates: start: 20100512, end: 20100515
  5. RISPERDAL [Suspect]
     Indication: PRODUCT USED FOR UNKNOWN INDICATION
     Dosage: 0.5 MG, 1 IN 1 D,ORAL; 1MG, 1 IN 1 D, ORAL; 2 MG, 1 IN 1 D, ORAL
     Route: 048
     Dates: start: 20100516, end: 20100517
  6. RISPERDAL [Suspect]
     Indication: PRODUCT USED FOR UNKNOWN INDICATION
     Dosage: 0.5 MG, 1 IN 1 D,ORAL; 1MG, 1 IN 1 D, ORAL; 2 MG, 1 IN 1 D, ORAL
     Route: 048
     Dates: start: 20100518, end: 20100530
  7. ASPIRIN [Concomitant]
  8. INSULIN (INSULIN) [Concomitant]
  9. BISOPROLOL (BISOPROLOL) [Concomitant]
  10. JONOSTERIL (JONOSTERIL /00351401/) [Concomitant]
  11. SIMVASTATIN [Concomitant]
  12. TORSEMIDE [Concomitant]

REACTIONS (5)
  - ACUTE MYOCARDIAL INFARCTION [None]
  - DYSPNOEA AT REST [None]
  - OEDEMA [None]
  - ANGINA PECTORIS [None]
  - CYANOSIS [None]
